FAERS Safety Report 4768433-1 (Version None)
Quarter: 2005Q3

REPORT INFORMATION
  Report Type: 
  Country: None (occurrence: None)
  Receive Date: 20050914
  Receipt Date: 20050629
  Transmission Date: 20060218
  Serious: Yes (Hospitalization, Disabling)
  Sender: FDA-Public Use
  Company Number: US-ROCHE-409393

PATIENT
  Age: 19 Year
  Sex: Male
  Weight: 65.8 kg

DRUGS (19)
  1. ACCUTANE [Suspect]
     Indication: ACNE
     Route: 048
     Dates: start: 20010928, end: 20011130
  2. ACCUTANE [Suspect]
     Route: 048
     Dates: start: 20011130
  3. ACCUTANE [Suspect]
     Dosage: DOSAGE REGIMEN: ONE PER DAY
     Route: 048
     Dates: start: 20020108
  4. ACCUTANE [Suspect]
     Route: 048
     Dates: start: 20020215, end: 20021015
  5. ACCUTANE [Suspect]
     Route: 048
     Dates: start: 20021206, end: 20030915
  6. ACCUTANE [Suspect]
     Route: 048
     Dates: start: 20031015, end: 20031015
  7. ASCORBIC ACID [Concomitant]
  8. ZINC [Concomitant]
  9. DRYSOL [Concomitant]
  10. VITAMIN E [Concomitant]
  11. CALCIUM GLUCONATE [Concomitant]
  12. PENLAC [Concomitant]
  13. AVODART [Concomitant]
  14. BACTROBAN [Concomitant]
  15. EUCERIN [Concomitant]
  16. CETAPHIL [Concomitant]
  17. LOPROX [Concomitant]
  18. CENTRUM [Concomitant]
  19. FISH OIL [Concomitant]

REACTIONS (25)
  - ALOPECIA [None]
  - ANAEMIA [None]
  - ANHEDONIA [None]
  - ARTHRALGIA [None]
  - CROHN'S DISEASE [None]
  - DIZZINESS [None]
  - DRY SKIN [None]
  - EPIDERMAL NAEVUS [None]
  - ERYTHEMA NODOSUM [None]
  - GASTROINTESTINAL DISORDER [None]
  - HYPERHIDROSIS [None]
  - HYPOTRICHOSIS [None]
  - ILEITIS [None]
  - INFLAMMATORY BOWEL DISEASE [None]
  - INTESTINAL HAEMORRHAGE [None]
  - LENTIGO [None]
  - LIMB DISCOMFORT [None]
  - LIVER FUNCTION TEST ABNORMAL [None]
  - MULTI-ORGAN DISORDER [None]
  - NASOPHARYNGITIS [None]
  - OESOPHAGEAL DISORDER [None]
  - ONYCHOMYCOSIS [None]
  - PERIRECTAL ABSCESS [None]
  - RECTAL HAEMORRHAGE [None]
  - SKIN PAPILLOMA [None]
